FAERS Safety Report 25597775 (Version 4)
Quarter: 2025Q3

REPORT INFORMATION
  Report Type: Spontaneous
  Country: EU (occurrence: EU)
  Receive Date: 20250723
  Receipt Date: 20250915
  Transmission Date: 20251021
  Serious: Yes (Hospitalization)
  Sender: PFIZER
  Company Number: None

PATIENT
  Age: 14 Year
  Sex: Female

DRUGS (2)
  1. NIMENRIX [Suspect]
     Active Substance: CLOSTRIDIUM TETANI TOXOID ANTIGEN (FORMALDEHYDE INACTIVATED)\MENINGOCOCCAL POLYSACCHARIDE VACCINE, G
     Indication: Immunisation
     Route: 030
     Dates: start: 20250703, end: 20250703
  2. BEXSERO [Suspect]
     Active Substance: MENINGOCOCCAL GROUP B VACCINE
     Indication: Immunisation
     Route: 030
     Dates: start: 20250703, end: 20250703

REACTIONS (4)
  - Vaccination site pain [Recovering/Resolving]
  - Vaccination site oedema [Recovering/Resolving]
  - Vaccination site erythema [Recovering/Resolving]
  - Vaccination site cellulitis [Recovering/Resolving]

NARRATIVE: CASE EVENT DATE: 20250704
